FAERS Safety Report 5427607-7 (Version None)
Quarter: 2007Q3

REPORT INFORMATION
  Report Type: 
  Country: None (occurrence: None)
  Receive Date: 20070828
  Receipt Date: 20070816
  Transmission Date: 20080115
  Serious: Yes (Hospitalization)
  Sender: FDA-Public Use
  Company Number: US-ELI_LILLY_AND_COMPANY-US200708003605

PATIENT
  Age: 74 Year
  Sex: Female

DRUGS (5)
  1. EVISTA [Suspect]
     Dosage: 60 MG, UNK
     Dates: end: 20070601
  2. EVISTA [Suspect]
     Dosage: 60 MG, UNK
     Dates: start: 20070701
  3. TOPROL-XL [Concomitant]
     Dosage: UNK, UNK
  4. TOPROL-XL [Concomitant]
  5. PREMARIN [Concomitant]

REACTIONS (9)
  - BACK PAIN [None]
  - BLOOD PRESSURE INCREASED [None]
  - CHOLELITHIASIS [None]
  - INTERNATIONAL NORMALISED RATIO DECREASED [None]
  - OEDEMA PERIPHERAL [None]
  - PAIN IN EXTREMITY [None]
  - PANCREATIC CYST [None]
  - SPINAL COLUMN STENOSIS [None]
  - THROMBOSIS [None]
